FAERS Safety Report 7495733-7 (Version None)
Quarter: 2011Q2

REPORT INFORMATION
  Report Type: 
  Country: None (occurrence: None)
  Receive Date: 20110523
  Receipt Date: 20110516
  Transmission Date: 20111010
  Serious: Yes (Death, Hospitalization)
  Sender: FDA-Public Use
  Company Number: GB-AMGEN-GBRSP2011007213

PATIENT
  Sex: Female

DRUGS (6)
  1. DOXORUBICIN HCL [Concomitant]
     Dosage: UNK
     Route: 042
     Dates: start: 20100901, end: 20101224
  2. VINCRISTINE [Concomitant]
     Dosage: UNK
     Route: 042
     Dates: start: 20100901, end: 20101224
  3. NEULASTA [Suspect]
     Indication: CHEMOTHERAPY
     Dosage: 6 MG, AFTER CHEMO
     Route: 058
     Dates: start: 20101224
  4. RITUXIMAB [Concomitant]
     Dosage: UNK
     Route: 042
     Dates: start: 20100901, end: 20101224
  5. CYCLOPHOSPHAMIDE [Concomitant]
     Dosage: UNK
     Route: 042
     Dates: start: 20100901, end: 20101224
  6. PREDNISONE [Concomitant]

REACTIONS (3)
  - NEUTROPENIC SEPSIS [None]
  - PNEUMONIA [None]
  - DIFFUSE LARGE B-CELL LYMPHOMA [None]
